FAERS Safety Report 25457875 (Version 1)
Quarter: 2025Q2

REPORT INFORMATION
  Report Type: Spontaneous
  Country: US (occurrence: US)
  Receive Date: 20250620
  Receipt Date: 20250620
  Transmission Date: 20250716
  Serious: No
  Sender: ACCORD
  Company Number: US-SUMITOMO PHARMA SWITZERLAND GMBH-2024SPA002247

PATIENT
  Age: 57 Year
  Sex: Male
  Weight: 112.47 kg

DRUGS (2)
  1. DILTIAZEM [Suspect]
     Active Substance: DILTIAZEM
     Indication: Cardiac disorder
     Dates: start: 2023
  2. RELUGOLIX [Suspect]
     Active Substance: RELUGOLIX
     Indication: Prostate cancer
     Dosage: 120 MG, HS
     Route: 048
     Dates: start: 20240826

REACTIONS (5)
  - Nasopharyngitis [Unknown]
  - Blood pressure fluctuation [Unknown]
  - Dysphemia [Unknown]
  - Arthralgia [Unknown]
  - Hypertension [Unknown]
